FAERS Safety Report 19151866 (Version 1)
Quarter: 2021Q2

REPORT INFORMATION
  Report Type: Report from Study
  Country: US (occurrence: US)
  Receive Date: 20210419
  Receipt Date: 20210419
  Transmission Date: 20210717
  Serious: Yes (Hospitalization)
  Sender: FDA-Public Use
  Company Number: US-ROCHE-2806993

PATIENT
  Age: 25 Year
  Sex: Male
  Weight: 88.2 kg

DRUGS (4)
  1. OXALIPLATIN. [Suspect]
     Active Substance: OXALIPLATIN
     Indication: ADENOCARCINOMA OF COLON
     Dosage: ON 20/OCT/2020, HE RECEIVED LAST DOSE OF OXALIPLATIN 166 MG
     Route: 042
     Dates: start: 20200825
  2. ATEZOLIZUMAB. [Suspect]
     Active Substance: ATEZOLIZUMAB
     Indication: ADENOCARCINOMA OF COLON
     Dosage: CYCLE 13?25?ON 20/OCT/2020, HE RECEIVED LAST DOSE OF ATEZOLIZUMAB
     Route: 041
     Dates: start: 20200825
  3. 5?FLUOROURACIL [Suspect]
     Active Substance: FLUOROURACIL
     Indication: ADENOCARCINOMA OF COLON
     Dosage: ON DAY 1 FOLLOWED BY 2400MG/M2 IV OVER 46 HOURS DAYS 1?3?ON 20?OCT?2020, HE RECEIVED LAST DOSE OF FL
     Route: 040
     Dates: start: 20200825
  4. LEUCOVORIN CALCIUM. [Suspect]
     Active Substance: LEUCOVORIN CALCIUM
     Indication: ADENOCARCINOMA OF COLON
     Dosage: ON 20/OCT/2020, HE RECEIVED LAST DOSE OF CALCIUM FOLINATE
     Route: 042
     Dates: start: 20200825

REACTIONS (1)
  - Hypoxia [Unknown]

NARRATIVE: CASE EVENT DATE: 20201105
